FAERS Safety Report 25339120 (Version 1)
Quarter: 2025Q2

REPORT INFORMATION
  Report Type: Spontaneous
  Country: US (occurrence: US)
  Receive Date: 20250521
  Receipt Date: 20250521
  Transmission Date: 20250716
  Serious: No
  Sender: AMNEAL
  Company Number: US-AMNEAL PHARMACEUTICALS-2025-AMRX-01802

PATIENT
  Sex: Female
  Weight: 61.678 kg

DRUGS (7)
  1. CREXONT [Suspect]
     Active Substance: CARBIDOPA\LEVODOPA
     Indication: Parkinson^s disease
     Route: 048
     Dates: start: 202503
  2. CREXONT [Suspect]
     Active Substance: CARBIDOPA\LEVODOPA
     Dosage: 5 CAPSULES (52.5-210 MG), 4 /DAY (UPPING QUANTITY TO 90/30 DAYS TO 120/90 DAYS)
     Route: 048
     Dates: start: 20250324
  3. CREXONT [Suspect]
     Active Substance: CARBIDOPA\LEVODOPA
     Dosage: UNK, 3 /DAY
     Route: 048
  4. ATORVASTATIN [Concomitant]
     Active Substance: ATORVASTATIN
     Indication: Product used for unknown indication
     Route: 048
  5. VITAMIN D NOS [Concomitant]
     Active Substance: CHOLECALCIFEROL\ERGOCALCIFEROL
     Indication: Product used for unknown indication
     Route: 048
  6. LISINOPRIL [Concomitant]
     Active Substance: LISINOPRIL
     Indication: Product used for unknown indication
     Route: 048
  7. ASPIRIN [Concomitant]
     Active Substance: ASPIRIN
     Indication: Product used for unknown indication
     Route: 048

REACTIONS (2)
  - Tremor [Recovering/Resolving]
  - Anxiety [Recovered/Resolved]
